FAERS Safety Report 16844930 (Version 4)
Quarter: 2019Q4

REPORT INFORMATION
  Report Type: Spontaneous
  Country: US (occurrence: US)
  Receive Date: 20190924
  Receipt Date: 20191122
  Transmission Date: 20200122
  Serious: No
  Sender: FDA-Public Use
  Company Number: US-PFIZER INC-2019408892

PATIENT
  Age: 54 Year
  Sex: Female

DRUGS (2)
  1. IBRANCE [Suspect]
     Active Substance: PALBOCICLIB
     Dosage: 100 MG, 1X/DAY (ONE CAPSULE EVERY DAY, SKIP SEVEN DAYS)
     Dates: start: 2019
  2. IBRANCE [Suspect]
     Active Substance: PALBOCICLIB
     Indication: BREAST CANCER FEMALE
     Dosage: 125 MG, UNK

REACTIONS (4)
  - White blood cell count decreased [Unknown]
  - Toothache [Unknown]
  - Madarosis [Unknown]
  - Neutrophil count decreased [Unknown]
